FAERS Safety Report 9358202 (Version 1)
Quarter: 2013Q2

REPORT INFORMATION
  Report Type: Spontaneous
  Country: IT (occurrence: IT)
  Receive Date: 20130620
  Receipt Date: 20130620
  Transmission Date: 20140414
  Serious: Yes (Other)
  Sender: FDA-Public Use
  Company Number: IT-PFIZER INC-2013183113

PATIENT
  Age: 28 Year
  Sex: Female

DRUGS (1)
  1. ALPRAZOLAM [Suspect]
     Indication: ANXIETY
     Dosage: 30 GTT, TOTAL
     Route: 048
     Dates: start: 20130427, end: 20130427

REACTIONS (2)
  - Drug abuse [Recovering/Resolving]
  - Confusional state [Recovering/Resolving]
